FAERS Safety Report 25947299 (Version 1)
Quarter: 2025Q4

REPORT INFORMATION
  Report Type: Spontaneous
  Country: US (occurrence: US)
  Receive Date: 20251022
  Receipt Date: 20251022
  Transmission Date: 20260117
  Serious: Yes (Other)
  Sender: AMGEN
  Company Number: US-AMGEN-USASP2025205474

PATIENT
  Sex: Female

DRUGS (32)
  1. REPATHA [Suspect]
     Active Substance: EVOLOCUMAB
     Indication: Product used for unknown indication
     Dosage: 140 MILLIGRAM, Q2WK
     Route: 058
     Dates: end: 20251010
  2. PREDNISONE [Suspect]
     Active Substance: PREDNISONE
     Indication: Product used for unknown indication
     Dosage: 10 MILLIGRAM, TOOK 4 FOR 3 DAYS, THEN 2, THEN 1,
     Route: 065
     Dates: start: 20250910, end: 20250922
  3. TEZSPIRE [Concomitant]
     Active Substance: TEZEPELUMAB-EKKO
  4. ALBUTEROL SULFATE [Concomitant]
     Active Substance: ALBUTEROL SULFATE
     Dosage: 108 (90 BASE)
     Dates: start: 20250910
  5. VIBRAMYCIN [Concomitant]
     Active Substance: DOXYCYCLINE
     Dosage: 100 MILLIGRAM, BID FOR 5 DAYS
     Dates: start: 20250910
  6. DELTASONE [Concomitant]
     Active Substance: PREDNISONE
     Dosage: 10 MILLIGRAM
     Dates: start: 20240503
  7. ELIQUIS [Concomitant]
     Active Substance: APIXABAN
     Dosage: 5 MILLIGRAM
     Dates: start: 20250718
  8. VITAMIN C [Concomitant]
     Active Substance: ASCORBIC ACID
     Dosage: 500 MILLIGRAM
  9. CALCIUM CARBONATE\CHOLECALCIFEROL [Concomitant]
     Active Substance: CALCIUM CARBONATE\CHOLECALCIFEROL
  10. CALCIUM\VITAMIN D [Concomitant]
     Active Substance: CALCIUM\VITAMIN D
     Dosage: 1000 MILLIGRAM
  11. VRAYLAR [Concomitant]
     Active Substance: CARIPRAZINE
     Dosage: 3 MILLIGRAM, BID, FOR 5 DAYS
     Dates: start: 20250905
  12. ZYRTEC [Concomitant]
     Active Substance: CETIRIZINE HYDROCHLORIDE
     Dosage: 10 MILLIGRAM
     Dates: start: 20250717
  13. PREVALITE [Concomitant]
     Active Substance: CHOLESTYRAMINE
     Dosage: UNK
     Dates: start: 20241206
  14. CELEXA [Concomitant]
     Active Substance: CITALOPRAM HYDROBROMIDE
     Dosage: 20 MILLIGRAM
     Dates: start: 20250814
  15. KLONOPIN [Concomitant]
     Active Substance: CLONAZEPAM
     Dosage: 1 MILLIGRAM
     Dates: start: 20251002
  16. FLEXERIL [Concomitant]
     Active Substance: CYCLOBENZAPRINE HYDROCHLORIDE
     Dosage: 5 MILLIGRAM, TID
     Dates: start: 20240108
  17. BENTYL [Concomitant]
     Active Substance: DICYCLOMINE HYDROCHLORIDE
     Dosage: 20 MILLIGRAM
     Dates: start: 20250814
  18. CARDIZEM [Concomitant]
     Active Substance: DILTIAZEM HYDROCHLORIDE
     Dosage: 30 MILLIGRAM, TID
     Dates: start: 20250717
  19. CARDIZEM CD [Concomitant]
     Active Substance: DILTIAZEM HYDROCHLORIDE
     Dosage: 120 MILLIGRAM, 24 HOUR
     Dates: start: 20240502
  20. DOXYCYCLINE HYDROCHLORIDE [Concomitant]
     Active Substance: DOXYCYCLINE HYDROCHLORIDE
     Dosage: 100 MILLIGRAM, ONE CAPSULE TWO TIMES DAILY FOR 5 DAYS
     Dates: start: 20250915
  21. PEPCID [Concomitant]
     Active Substance: FAMOTIDINE
     Dosage: 20 MILLIGRAM
     Dates: start: 20220818
  22. VEOZAH [Concomitant]
     Active Substance: FEZOLINETANT
     Dosage: 45 MILLIGRAM
     Dates: start: 20240506, end: 20251013
  23. ISORDIL [Concomitant]
     Active Substance: ISOSORBIDE DINITRATE
     Dosage: 30 MILLIGRAM
  24. METFORMIN [Concomitant]
     Active Substance: METFORMIN HYDROCHLORIDE
     Dosage: 500 MILLIGRAM
     Dates: start: 20250817, end: 20251002
  25. DULERA [Concomitant]
     Active Substance: FORMOTEROL FUMARATE DIHYDRATE\MOMETASONE FUROATE
     Dosage: 200-5 MCG/ACT AEROSO 2 PUFFS TWO TIMES A DAY
  26. SINGULAIR [Concomitant]
     Active Substance: MONTELUKAST SODIUM
     Dosage: 10 MILLIGRAM
  27. ZOFRAN [Concomitant]
     Active Substance: ONDANSETRON HYDROCHLORIDE
     Dosage: 4 MILLIGRAM
     Dates: start: 20250108
  28. PROTONIX [Concomitant]
     Active Substance: PANTOPRAZOLE SODIUM
     Dosage: UNK
     Dates: start: 20250912
  29. PRAZOSIN [Concomitant]
     Active Substance: PRAZOSIN
     Dosage: TAKING ONE TO TWO CAPSULES BY MOUTH NIGHTLY, THEN TAKE ONE CAPSULE NIGHTLY FOR 7 NIGHT THEN INCREASE
     Dates: start: 20250820
  30. OZEMPIC [Concomitant]
     Active Substance: SEMAGLUTIDE
     Dosage: 4 MG BY 3 ML BY PEN, ONCE A WEEK,
     Dates: start: 20250814
  31. SPIRIVA RESPIMAT [Concomitant]
     Active Substance: TIOTROPIUM BROMIDE
     Dosage: 2.5, 2 PUFFS DAILY
     Dates: start: 20250207
  32. ZANAFLEX [Concomitant]
     Active Substance: TIZANIDINE HYDROCHLORIDE
     Dosage: 4 MG BY MOUTH EVERY 6 HOURS AS NEEDED

REACTIONS (33)
  - Conductive deafness [Unknown]
  - Hypoxia [Unknown]
  - Crohn^s disease [Unknown]
  - Bipolar II disorder [Unknown]
  - Type 2 diabetes mellitus [Unknown]
  - Interstitial lung disease [Unknown]
  - Depression [Unknown]
  - Coagulopathy [Unknown]
  - Tobacco abuse [Unknown]
  - Gastrooesophageal reflux disease [Unknown]
  - Asthma [Unknown]
  - Cardiac operation [Unknown]
  - Generalised anxiety disorder [Unknown]
  - Panic attack [Unknown]
  - Post-traumatic stress disorder [Unknown]
  - Oesophagitis [Unknown]
  - Hot flush [Unknown]
  - Hypertension [Unknown]
  - Irritable bowel syndrome [Unknown]
  - Hepatic lesion [Unknown]
  - Lymphadenopathy [Unknown]
  - Neck pain [Unknown]
  - Breast mass [Unknown]
  - Sternotomy [Unknown]
  - Supraventricular extrasystoles [Unknown]
  - Menopause [Unknown]
  - Sciatica [Unknown]
  - Seasonal allergy [Unknown]
  - Diarrhoea [Unknown]
  - Obesity [Unknown]
  - Coagulopathy [Unknown]
  - Fibromyalgia [Unknown]
  - Supraventricular extrasystoles [Unknown]
